FAERS Safety Report 11042050 (Version 2)
Quarter: 2015Q2

REPORT INFORMATION
  Report Type: Spontaneous
  Country: US (occurrence: US)
  Receive Date: 20150416
  Receipt Date: 20150525
  Transmission Date: 20150821
  Serious: No
  Sender: FDA-Public Use
  Company Number: US-JNJFOC-20130607592

PATIENT
  Sex: Female
  Weight: 47.63 kg

DRUGS (3)
  1. XARELTO [Suspect]
     Active Substance: RIVAROXABAN
     Indication: CEREBRAL VENOUS THROMBOSIS
     Route: 048
  2. XARELTO [Suspect]
     Active Substance: RIVAROXABAN
     Indication: CEREBRAL VENOUS THROMBOSIS
     Route: 048
  3. XARELTO [Suspect]
     Active Substance: RIVAROXABAN
     Indication: CEREBRAL VENOUS THROMBOSIS
     Route: 048
     Dates: start: 201302

REACTIONS (9)
  - Lip swelling [Unknown]
  - Lip injury [Unknown]
  - Drug dose omission [Unknown]
  - Chapped lips [Unknown]
  - Headache [Recovering/Resolving]
  - Thermal burn [Unknown]
  - Lip dry [Unknown]
  - Lip blister [Unknown]
  - Off label use [Unknown]

NARRATIVE: CASE EVENT DATE: 2013
